FAERS Safety Report 20308102 (Version 1)
Quarter: 2022Q1

REPORT INFORMATION
  Report Type: Spontaneous
  Country: JP (occurrence: JP)
  Receive Date: 20220107
  Receipt Date: 20220107
  Transmission Date: 20220423
  Serious: Yes (Death, Life-Threatening, Other)
  Sender: FDA-Public Use
  Company Number: JP-ONO-2022JP000414

PATIENT
  Age: 48 Year
  Sex: Female
  Weight: 56.6 kg

DRUGS (13)
  1. OPDIVO [Suspect]
     Active Substance: NIVOLUMAB
     Indication: Gastric cancer
     Dosage: 240 MG
     Route: 041
     Dates: start: 20210511, end: 20210511
  2. ANAMORELIN HYDROCHLORIDE [Suspect]
     Active Substance: ANAMORELIN HYDROCHLORIDE
     Indication: Cachexia
     Dosage: 100 MG, EVERYDAY
     Route: 048
     Dates: start: 20210501, end: 20210512
  3. AMITRIPTYLINE [Concomitant]
     Active Substance: AMITRIPTYLINE
     Indication: Gastric cancer
     Dosage: 30 MG, EVERYDAY
     Route: 065
     Dates: start: 20210506, end: 20210509
  4. SULFAMETHOXAZOLE\TRIMETHOPRIM [Concomitant]
     Active Substance: SULFAMETHOXAZOLE\TRIMETHOPRIM
     Indication: Prophylaxis
     Dosage: 0.5 DF, EVERYDAY
     Route: 048
     Dates: end: 20210507
  5. FLUCONAZOLE [Concomitant]
     Active Substance: FLUCONAZOLE
     Indication: Prophylaxis
     Dosage: 100 MG, EVERYDAY
     Route: 065
     Dates: end: 20210511
  6. MIYA-BM [Concomitant]
     Active Substance: CLOSTRIDIUM BUTYRICUM SPORES STRAIN M-55
     Indication: Product used for unknown indication
     Dosage: 6 DF, EVERYDAY
     Route: 048
     Dates: end: 20210511
  7. NEXIUM [Concomitant]
     Active Substance: ESOMEPRAZOLE MAGNESIUM
     Indication: Product used for unknown indication
     Dosage: 20 MG, EVERYDAY
     Route: 065
     Dates: end: 20210512
  8. REBAMIPIDE [Concomitant]
     Active Substance: REBAMIPIDE
     Indication: Product used for unknown indication
     Dosage: 3 DF, EVERYDAY
     Route: 048
     Dates: end: 20210511
  9. FEBUXOSTAT [Concomitant]
     Active Substance: FEBUXOSTAT
     Indication: Product used for unknown indication
     Dosage: 10 MG, EVERYDAY
     Route: 065
     Dates: end: 20210511
  10. METHYLCOBALAMIN [Concomitant]
     Active Substance: METHYLCOBALAMIN
     Indication: Product used for unknown indication
     Dosage: 1.5 MG, EVERYDAY
     Route: 065
     Dates: end: 20210511
  11. SOLU-CORTEF [Concomitant]
     Active Substance: HYDROCORTISONE SODIUM SUCCINATE
     Indication: Premedication
     Dosage: 100 MG
     Route: 065
     Dates: start: 20210511, end: 20210511
  12. POLARAMINE [Concomitant]
     Active Substance: DEXCHLORPHENIRAMINE MALEATE
     Indication: Premedication
     Dosage: 1 AMPUL
     Route: 065
     Dates: start: 20210511, end: 20210511
  13. PREDONINE [Concomitant]
     Active Substance: PREDNISOLONE
     Indication: Premedication
     Dosage: 20 MG
     Route: 065
     Dates: start: 20210501, end: 20210501

REACTIONS (4)
  - Malignant neoplasm progression [Fatal]
  - Infection [Not Recovered/Not Resolved]
  - Dyspnoea [Not Recovered/Not Resolved]
  - Blood pressure decreased [Not Recovered/Not Resolved]

NARRATIVE: CASE EVENT DATE: 20210510
